FAERS Safety Report 7963259-X (Version None)
Quarter: 2011Q4

REPORT INFORMATION
  Report Type: 
  Country: None (occurrence: None)
  Receive Date: 20111208
  Receipt Date: 20111202
  Transmission Date: 20120403
  Serious: No
  Sender: FDA-Public Use
  Company Number: US-BIOGENIDEC-2011BI045398

PATIENT
  Age: 54 Year
  Sex: Female

DRUGS (3)
  1. AVONEX [Concomitant]
     Indication: MULTIPLE SCLEROSIS
     Route: 030
  2. TYSABRI [Suspect]
     Indication: MULTIPLE SCLEROSIS
     Route: 042
     Dates: start: 20111129
  3. BENADRYL [Concomitant]
     Indication: PREMEDICATION

REACTIONS (11)
  - PAIN IN EXTREMITY [None]
  - DRY THROAT [None]
  - PAIN [None]
  - DIZZINESS [None]
  - MUSCULAR WEAKNESS [None]
  - HEADACHE [None]
  - HYPOAESTHESIA ORAL [None]
  - HYPOAESTHESIA [None]
  - DRY MOUTH [None]
  - MUSCLE TWITCHING [None]
  - FATIGUE [None]
